FAERS Safety Report 4643819-4 (Version None)
Quarter: 2005Q2

REPORT INFORMATION
  Report Type: 
  Country: None (occurrence: None)
  Receive Date: 20050422
  Receipt Date: 20050422
  Transmission Date: 20051028
  Serious: Yes (Other)
  Sender: FDA-Public Use
  Company Number: None

PATIENT
  Age: 70 Year
  Sex: Male
  Weight: 88.9 kg

DRUGS (9)
  1. ATORVASTATIN [Suspect]
  2. ATENOLOL [Concomitant]
  3. GLYBURIDE [Concomitant]
  4. RANITIDINE HCL [Concomitant]
  5. ETODOLAC [Concomitant]
  6. HYDROCODONE/ACETAMINOPHEN [Concomitant]
  7. PSYLLIUM [Concomitant]
  8. DOCUSATE NA [Concomitant]
  9. NITROGLYCERIN [Concomitant]

REACTIONS (1)
  - BLOOD CREATINE PHOSPHOKINASE INCREASED [None]
